FAERS Safety Report 10226113 (Version 2)
Quarter: 2014Q4

REPORT INFORMATION
  Report Type: Spontaneous
  Country: US (occurrence: US)
  Receive Date: 20140609
  Receipt Date: 20141205
  Transmission Date: 20150528
  Serious: No
  Sender: FDA-Public Use
  Company Number: US-ASTELLAS-2014US003450

PATIENT
  Sex: Male

DRUGS (3)
  1. XTANDI [Suspect]
     Active Substance: ENZALUTAMIDE
     Dosage: 1 DF, UNK
     Route: 048
  2. XTANDI [Suspect]
     Active Substance: ENZALUTAMIDE
     Indication: PROSTATE CANCER
     Route: 048
     Dates: start: 20140213
  3. XTANDI [Suspect]
     Active Substance: ENZALUTAMIDE
     Dosage: 4 DF, UNK
     Route: 048

REACTIONS (3)
  - Incorrect dose administered [Unknown]
  - Product size issue [Unknown]
  - Dysphagia [Unknown]
